FAERS Safety Report 4546427-9 (Version None)
Quarter: 2005Q1

REPORT INFORMATION
  Report Type: 
  Country: None (occurrence: None)
  Receive Date: 20050103
  Receipt Date: 20041221
  Transmission Date: 20050727
  Serious: Yes (Other)
  Sender: FDA-Public Use
  Company Number: 2004118199

PATIENT
  Age: 44 Year
  Sex: Female

DRUGS (1)
  1. FARMORUBICIN RD (EPIRUBICIN HYDROCHLORIDE) [Suspect]
     Indication: BREAST CANCER
     Dosage: INTRAVENOUS
     Route: 042
     Dates: start: 20041207, end: 20041214

REACTIONS (1)
  - INTERSTITIAL LUNG DISEASE [None]
